FAERS Safety Report 17423717 (Version 1)
Quarter: 2020Q1

REPORT INFORMATION
  Report Type: Spontaneous
  Country: GB (occurrence: GB)
  Receive Date: 20200217
  Receipt Date: 20200217
  Transmission Date: 20200409
  Serious: No
  Sender: FDA-Public Use
  Company Number: GB-ALKEM LABORATORIES LIMITED-GB-ALKEM-2019-10908

PATIENT
  Age: 24 Year
  Sex: Female
  Weight: 55 kg

DRUGS (6)
  1. HYDROXOCOBALAMIN [Concomitant]
     Active Substance: HYDROXOCOBALAMIN
     Indication: ILL-DEFINED DISORDER
     Dosage: USE AS DIRECTED
     Route: 065
     Dates: start: 20181003
  2. NITROFURANTOIN. [Concomitant]
     Active Substance: NITROFURANTOIN
     Indication: ILL-DEFINED DISORDER
     Dosage: TAKE ONE TWICE DAILY FOR 3 DAYS, TO TREAT INFEC...
     Route: 065
     Dates: start: 20190808, end: 20190811
  3. TRIMETHOPRIM. [Concomitant]
     Active Substance: TRIMETHOPRIM
     Indication: ILL-DEFINED DISORDER
     Dosage: TAKE ONE TWICE DAILY
     Route: 065
     Dates: start: 20190815
  4. CEFALEXIN [Suspect]
     Active Substance: CEPHALEXIN
     Indication: PRODUCT USED FOR UNKNOWN INDICATION
     Dosage: 1500 MILLIGRAM, QD, (TAKE ONE 3X DAILY)
     Route: 065
     Dates: start: 20190814
  5. SALBUTAMOL [Concomitant]
     Active Substance: ALBUTEROL
     Indication: ILL-DEFINED DISORDER
     Dosage: TWO PUFFS FOUR TIMES A DAY
     Route: 065
     Dates: start: 20150709
  6. EFLORNITHINE [Concomitant]
     Active Substance: EFLORNITHINE
     Indication: ILL-DEFINED DISORDER
     Dosage: USE TWICE DAILY
     Route: 065
     Dates: start: 20190610, end: 20190617

REACTIONS (1)
  - Rash pruritic [Recovered/Resolved]

NARRATIVE: CASE EVENT DATE: 20190816
